FAERS Safety Report 21234449 (Version 2)
Quarter: 2022Q3

REPORT INFORMATION
  Report Type: Report from Study
  Country: US (occurrence: US)
  Receive Date: 20220820
  Receipt Date: 20220922
  Transmission Date: 20221027
  Serious: Yes (Hospitalization)
  Sender: FDA-Public Use
  Company Number: US-ABBVIE-22K-163-4508859-00

PATIENT
  Sex: Female

DRUGS (1)
  1. RINVOQ [Suspect]
     Active Substance: UPADACITINIB
     Indication: Rheumatoid arthritis
     Route: 048

REACTIONS (5)
  - COVID-19 [Recovered/Resolved]
  - Hyperventilation [Recovered/Resolved]
  - Dizziness [Recovered/Resolved]
  - Psoriatic arthropathy [Unknown]
  - Mobility decreased [Unknown]
